FAERS Safety Report 11198398 (Version 1)
Quarter: 2015Q2

REPORT INFORMATION
  Report Type: Spontaneous
  Country: US (occurrence: None)
  Receive Date: 20150615
  Receipt Date: 20150615
  Transmission Date: 20150821
  Serious: Yes (Disabling, Other)
  Sender: FDA-Public Use
  Company Number: None

PATIENT
  Age: 94 Year
  Sex: Female
  Weight: 58.06 kg

DRUGS (10)
  1. AZOPT EYE DROP [Concomitant]
  2. CITRACAL PETITES [Concomitant]
     Active Substance: CALCIUM CITRATE
  3. BISOPROLOL FUMARATE 5MG FILM COATED TABLETS [Concomitant]
     Active Substance: BISOPROLOL FUMARATE
  4. FLUTICASONE [Concomitant]
     Active Substance: FLUTICASONE\FLUTICASONE PROPIONATE
  5. LOW DOSE ASPIRIN [Concomitant]
     Active Substance: ASPIRIN
  6. COMBIGAN [Concomitant]
     Active Substance: BRIMONIDINE TARTRATE\TIMOLOL MALEATE
  7. VITITAMIN D3 [Concomitant]
  8. AREDS 2 [Concomitant]
  9. LISINOPRIL 5 MG LUPIN [Suspect]
     Active Substance: LISINOPRIL
     Indication: HYPERTENSION
     Route: 048
  10. CENTRUM SILVER [Concomitant]
     Active Substance: VITAMINS

REACTIONS (2)
  - Cough [None]
  - Haemoptysis [None]

NARRATIVE: CASE EVENT DATE: 20150611
